FAERS Safety Report 7239125-4 (Version None)
Quarter: 2011Q1

REPORT INFORMATION
  Report Type: 
  Country: None (occurrence: None)
  Receive Date: 20110121
  Receipt Date: 20110119
  Transmission Date: 20110831
  Serious: Yes (Other)
  Sender: FDA-Public Use
  Company Number: US-PFIZER INC-2011013530

PATIENT
  Sex: Female

DRUGS (4)
  1. AMBIEN [Concomitant]
     Indication: SLEEP DISORDER
     Dosage: UNK, AS NEEDED
  2. FOLIC ACID [Concomitant]
     Dosage: UNK
  3. PRENATAL VITAMINS [Concomitant]
  4. SERTRALINE HYDROCHLORIDE [Suspect]
     Dosage: 50 MG, UNK

REACTIONS (2)
  - PLACENTA PRAEVIA [None]
  - DRUG EXPOSURE DURING PREGNANCY [None]
